FAERS Safety Report 7690980-3 (Version None)
Quarter: 2011Q3

REPORT INFORMATION
  Report Type: 
  Country: None (occurrence: None)
  Receive Date: 20110818
  Receipt Date: 20110816
  Transmission Date: 20111222
  Serious: Yes (Other)
  Sender: FDA-Public Use
  Company Number: US-PFIZER INC-2009305531

PATIENT
  Sex: Female
  Weight: 74.83 kg

DRUGS (11)
  1. LYRICA [Suspect]
     Dosage: 100 MG, 3X/DAY
     Route: 048
     Dates: start: 20080801
  2. VITAMIN D [Concomitant]
     Dosage: 50000 IU, WEEKLY
  3. NORVASC [Concomitant]
     Dosage: 10 MG, 2X/DAY
  4. COUMADIN [Concomitant]
     Dosage: 8 MG, 1X/DAY
  5. PREVACID [Concomitant]
     Dosage: 30 MG, 1X/DAY
  6. IMURAN [Concomitant]
     Indication: PROPHYLAXIS AGAINST TRANSPLANT REJECTION
     Dosage: 50 MG, 1X/DAY
  7. SYNTHROID [Concomitant]
     Dosage: 100 MG, 1X/DAY
  8. LYRICA [Suspect]
     Indication: CENTRAL PAIN SYNDROME
     Dosage: 200 MG, DAILY
     Dates: start: 20080801
  9. PROGRAF [Concomitant]
     Indication: PROPHYLAXIS AGAINST TRANSPLANT REJECTION
     Dosage: 9 MG, 1X/DAY
  10. METOPROLOL [Concomitant]
     Dosage: 100 MG, 2X/DAY
  11. MAGNESIUM OXIDE [Concomitant]
     Dosage: 400MG NINE TABLETS DAILY

REACTIONS (1)
  - OSTEONECROSIS [None]
